FAERS Safety Report 5104937-X (Version None)
Quarter: 2006Q3

REPORT INFORMATION
  Report Type: 
  Country: None (occurrence: None)
  Receive Date: 20060908
  Receipt Date: 20060908
  Transmission Date: 20061208
  Serious: Yes (Hospitalization)
  Sender: FDA-Public Use
  Company Number: None

PATIENT
  Sex: Female
  Weight: 68.7 kg

DRUGS (2)
  1. DOXORUBICIN [Suspect]
     Indication: BREAST CANCER
     Dosage: 60MG/ M2   Q2WEEKS- 4 CYCLE   IV
     Route: 042
     Dates: start: 20060629, end: 20060810
  2. CYCLOPHOSPHAMIDE [Suspect]
     Indication: BREAST CANCER
     Dosage: 600MG/ M2  Q2WEEKS- 4 CYCLE   IV
     Route: 042
     Dates: start: 20060629, end: 20060810

REACTIONS (1)
  - FEBRILE NEUTROPENIA [None]
